FAERS Safety Report 9395455 (Version 2)
Quarter: 2013Q4

REPORT INFORMATION
  Report Type: Spontaneous
  Country: US (occurrence: US)
  Receive Date: 20130711
  Receipt Date: 20131010
  Transmission Date: 20140711
  Serious: No
  Sender: FDA-Public Use
  Company Number: US-ASTELLAS-2013US005949

PATIENT
  Age: 69 Year
  Sex: Female

DRUGS (1)
  1. MYRBETRIQ [Suspect]
     Indication: MICTURITION URGENCY
     Dosage: 25 MG, UNKNOWN/D
     Route: 048
     Dates: start: 20130525

REACTIONS (3)
  - Cough [Recovering/Resolving]
  - Dry eye [Recovering/Resolving]
  - Nasopharyngitis [Recovering/Resolving]
